FAERS Safety Report 10381690 (Version 1)
Quarter: 2014Q3

REPORT INFORMATION
  Report Type: Spontaneous
  Country: IT (occurrence: IT)
  Receive Date: 20140813
  Receipt Date: 20140813
  Transmission Date: 20150326
  Serious: Yes (Disabling, Other)
  Sender: FDA-Public Use
  Company Number: IT-TEVA-501475ISR

PATIENT
  Age: 74 Year
  Sex: Female

DRUGS (4)
  1. CLOMIPRAMINE [Concomitant]
     Active Substance: CLOMIPRAMINE
     Indication: BIPOLAR DISORDER
     Dosage: 75 MILLIGRAM DAILY;
     Route: 065
  2. GLIMEPIRIDE. [Concomitant]
     Active Substance: GLIMEPIRIDE
     Indication: DIABETES MELLITUS
     Dosage: 2 MILLIGRAM DAILY;
     Route: 065
  3. VALSARTAN W/HYDROCHLOROTHIAZIDE [Interacting]
     Active Substance: HYDROCHLOROTHIAZIDE\VALSARTAN
     Indication: HYPERTENSION
     Dosage: 1 DF: VALSARTAN 160MG + HYDROCHLOROTHIAZIDE 12.5MG ONCE DAILY
     Route: 065
  4. LITHIUM [Suspect]
     Active Substance: LITHIUM CARBONATE
     Indication: BIPOLAR DISORDER
     Dosage: 600 MILLIGRAM DAILY;
     Route: 065

REACTIONS (5)
  - Parkinsonism [Recovered/Resolved]
  - Drug interaction [Unknown]
  - Renal impairment [Unknown]
  - Toxicity to various agents [Recovered/Resolved]
  - Hypothyroidism [Recovered/Resolved]
